FAERS Safety Report 19216626 (Version 1)
Quarter: 2021Q2

REPORT INFORMATION
  Report Type: Spontaneous
  Country: US (occurrence: US)
  Receive Date: 20210505
  Receipt Date: 20210505
  Transmission Date: 20210717
  Serious: Yes (Other)
  Sender: FDA-Public Use
  Company Number: None

PATIENT
  Age: 61 Year
  Sex: Male
  Weight: 72 kg

DRUGS (18)
  1. SELENIUM [Concomitant]
     Active Substance: SELENIUM
  2. MULTI?VITAMIN VITAMIN C [Concomitant]
  3. SAW PALMETTO [Concomitant]
     Active Substance: HERBALS\SAW PALMETTO
  4. GLUCOSAMINE CHONDROITIN [Concomitant]
     Active Substance: CHONDROITIN SULFATE (BOVINE)\GLUCOSAMINE HYDROCHLORIDE
  5. OMEGA 3 [Concomitant]
     Active Substance: OMEGA-3 FATTY ACIDS
  6. CRANBERRY. [Concomitant]
     Active Substance: CRANBERRY
  7. TMG [Concomitant]
  8. ZEAXANTHIN [Concomitant]
     Active Substance: ZEAXANTHIN
  9. I?LYSINE [Concomitant]
  10. NIACIN. [Concomitant]
     Active Substance: NIACIN
  11. ALPHA LIPOIC ACID [Concomitant]
     Active Substance: .ALPHA.-LIPOIC ACID
  12. RECLAST [Suspect]
     Active Substance: ZOLEDRONIC ACID
     Indication: OSTEOPOROSIS
     Dosage: ?          QUANTITY:1 INJECTION(S);OTHER FREQUENCY:YEARLY;?
     Route: 042
     Dates: start: 20210420, end: 20210420
  13. CALCIUM CITRATE / VITAMIN D [Concomitant]
  14. TAURINE [Concomitant]
     Active Substance: TAURINE
  15. BETA SITOSTEROL [Concomitant]
  16. POTASSIUM GLUCONATE [Concomitant]
     Active Substance: POTASSIUM GLUCONATE
  17. VITAMIN E [Concomitant]
     Active Substance: .ALPHA.-TOCOPHEROL
  18. LUTEIN [Concomitant]
     Active Substance: LUTEIN

REACTIONS (3)
  - Tinnitus [None]
  - Asthenia [None]
  - Ear disorder [None]

NARRATIVE: CASE EVENT DATE: 20210421
